FAERS Safety Report 18414657 (Version 1)
Quarter: 2020Q4

REPORT INFORMATION
  Report Type: Spontaneous
  Country: US (occurrence: US)
  Receive Date: 20201022
  Receipt Date: 20201022
  Transmission Date: 20210114
  Serious: No
  Sender: FDA-Public Use
  Company Number: US-GLAXOSMITHKLINE-US2020AMR205424

PATIENT
  Sex: Female

DRUGS (1)
  1. NUCALA [Suspect]
     Active Substance: MEPOLIZUMAB
     Indication: ASTHMA
     Dosage: 100 MG, CYC
     Dates: start: 201611, end: 202003

REACTIONS (4)
  - Drug resistance [Unknown]
  - Asthma [Unknown]
  - Eosinophil count increased [Unknown]
  - Wheezing [Unknown]

NARRATIVE: CASE EVENT DATE: 201909
